FAERS Safety Report 24278654 (Version 2)
Quarter: 2024Q4

REPORT INFORMATION
  Report Type: Spontaneous
  Country: US (occurrence: US)
  Receive Date: 20240903
  Receipt Date: 20241001
  Transmission Date: 20250114
  Serious: Yes (Disabling, Other)
  Sender: SUNOVION
  Company Number: US-SMPA-2024SPA001013AA

PATIENT

DRUGS (2)
  1. LATUDA [Suspect]
     Active Substance: LURASIDONE HYDROCHLORIDE
     Indication: Bipolar II disorder
     Dosage: UNK
     Route: 048
     Dates: start: 20221114, end: 20240305
  2. CAPLYTA [Concomitant]
     Active Substance: LUMATEPERONE
     Route: 065

REACTIONS (2)
  - Tardive dyskinesia [Recovering/Resolving]
  - Off label use [Unknown]

NARRATIVE: CASE EVENT DATE: 20240505
